FAERS Safety Report 8612803-8 (Version None)
Quarter: 2012Q3

REPORT INFORMATION
  Report Type: 
  Country: None (occurrence: None)
  Receive Date: 20120822
  Receipt Date: 20120201
  Transmission Date: 20120928
  Serious: No
  Sender: FDA-Public Use
  Company Number: US-ASTRAZENECA-2010SE07332

PATIENT
  Age: 60 Year
  Sex: Female

DRUGS (3)
  1. SYMBICORT [Suspect]
     Dosage: 160 / 4.5 MCG UNKNOWN FREQUENCY.
     Route: 055
  2. RHINOCORT [Suspect]
     Route: 045
  3. NEXIUM [Suspect]
     Route: 048

REACTIONS (6)
  - INFLUENZA [None]
  - INCORRECT DOSE ADMINISTERED [None]
  - ASTHMA [None]
  - PULMONARY CONGESTION [None]
  - MALAISE [None]
  - EPISTAXIS [None]
